FAERS Safety Report 9662414 (Version 2)
Quarter: 2013Q4

REPORT INFORMATION
  Report Type: Spontaneous
  Country: US (occurrence: US)
  Receive Date: 20131031
  Receipt Date: 20131031
  Transmission Date: 20140711
  Serious: No
  Sender: FDA-Public Use
  Company Number: US-PURDUE-USA-2010-0049130

PATIENT
  Sex: Male

DRUGS (2)
  1. OXYCONTIN (NDA 22-272) [Suspect]
     Indication: NEURALGIA
     Dosage: 20 MG, QID
     Dates: start: 20100910
  2. CLONIDINE [Concomitant]
     Indication: PRODUCT USED FOR UNKNOWN INDICATION

REACTIONS (6)
  - Drug withdrawal syndrome [Unknown]
  - Muscle tightness [Unknown]
  - Headache [Unknown]
  - Hyperhidrosis [Unknown]
  - Inadequate analgesia [Unknown]
  - Drug ineffective [Unknown]
